FAERS Safety Report 6603077-8 (Version None)
Quarter: 2010Q1

REPORT INFORMATION
  Report Type: 
  Country: None (occurrence: None)
  Receive Date: 20100226
  Receipt Date: 20100222
  Transmission Date: 20100710
  Serious: Yes (Other)
  Sender: FDA-Public Use
  Company Number: PHEH2009US14940

PATIENT
  Sex: Female

DRUGS (4)
  1. EXELON [Suspect]
     Indication: DEMENTIA ALZHEIMER'S TYPE
     Dosage: 4.6 MG, DAILY
     Route: 062
     Dates: start: 20090401, end: 20091101
  2. EXELON [Suspect]
     Dosage: 4.6 MG, DAILY
     Dates: start: 20091201
  3. NAMENDA [Concomitant]
  4. ARICEPT [Concomitant]

REACTIONS (8)
  - APPLICATION SITE EROSION [None]
  - APPLICATION SITE ERYTHEMA [None]
  - APPLICATION SITE IRRITATION [None]
  - APPLICATION SITE PRURITUS [None]
  - MEMORY IMPAIRMENT [None]
  - PARKINSON'S DISEASE [None]
  - PRODUCT ADHESION ISSUE [None]
  - RECTAL HAEMORRHAGE [None]
